FAERS Safety Report 23533609 (Version 1)
Quarter: 2024Q1

REPORT INFORMATION
  Report Type: Report from Study
  Country: KR (occurrence: KR)
  Receive Date: 20240216
  Receipt Date: 20240216
  Transmission Date: 20240410
  Serious: Yes (Other)
  Sender: FDA-Public Use
  Company Number: KR-GUERBET / KOREA-KR-20240005

PATIENT

DRUGS (3)
  1. LIPIODOL [Suspect]
     Active Substance: ETHIODIZED OIL
     Indication: Transcatheter arterial chemoembolisation
     Dosage: LIPIODOL AS AN EMULSION MIXTURE WITH ADRIAMYCIN RDF FOLLOWED BY EMBOSPHERE
     Route: 013
  2. ADRIAMYCIN [Suspect]
     Active Substance: DOXORUBICIN HYDROCHLORIDE
     Indication: Transcatheter arterial chemoembolisation
     Dosage: LIPIODOL AS AN EMULSION MIXTURE WITH ADRIAMYCIN RDF FOLLOWED BY EMBOSPHERE
     Route: 013
  3. DEVICE [Suspect]
     Active Substance: DEVICE
     Indication: Transcatheter arterial chemoembolisation
     Dosage: LIPIODOL AS AN EMULSION MIXTURE WITH ADRIAMYCIN RDF FOLLOWED BY EMBOSPHERE
     Route: 013

REACTIONS (1)
  - Hepatic infarction [Unknown]
